FAERS Safety Report 5404818-8 (Version None)
Quarter: 2007Q3

REPORT INFORMATION
  Report Type: 
  Country: None (occurrence: None)
  Receive Date: 20070803
  Receipt Date: 20070727
  Transmission Date: 20080115
  Serious: Yes (Other)
  Sender: FDA-Public Use
  Company Number: PHRM2007FR01496

PATIENT
  Age: 55 Year
  Sex: Female

DRUGS (3)
  1. ESTRADERM TTS 25 [Suspect]
     Indication: MENOPAUSAL SYMPTOMS
     Dosage: UNK, UNK
     Route: 062
     Dates: start: 19970101
  2. ESTRADERM [Suspect]
     Indication: MENOPAUSAL SYMPTOMS
     Route: 062
     Dates: start: 20010101, end: 20030101
  3. ESTRADIOL [Suspect]
     Indication: MENOPAUSAL SYMPTOMS
     Route: 062
     Dates: end: 20000101

REACTIONS (4)
  - HYPERGAMMAGLOBULINAEMIA [None]
  - RED BLOOD CELL SEDIMENTATION RATE INCREASED [None]
  - SJOGREN'S SYNDROME [None]
  - VASCULAR PURPURA [None]
